FAERS Safety Report 23685674 (Version 1)
Quarter: 2024Q1

REPORT INFORMATION
  Report Type: Report from Study
  Country: ZA (occurrence: ZA)
  Receive Date: 20240329
  Receipt Date: 20240329
  Transmission Date: 20240409
  Serious: Yes (Other)
  Sender: FDA-Public Use
  Company Number: ZA-ABBVIE-5696122

PATIENT
  Age: 52 Year
  Sex: Female

DRUGS (1)
  1. RINVOQ [Suspect]
     Active Substance: UPADACITINIB
     Indication: Ankylosing spondylitis
     Dosage: 15 MILLIGRAM
     Route: 048
     Dates: start: 20230914

REACTIONS (1)
  - Spinal fusion surgery [Recovering/Resolving]

NARRATIVE: CASE EVENT DATE: 20240201
